FAERS Safety Report 7034381-X (Version None)
Quarter: 2010Q4

REPORT INFORMATION
  Report Type: 
  Country: None (occurrence: None)
  Receive Date: 20101008
  Receipt Date: 20100927
  Transmission Date: 20110411
  Serious: Yes (Other)
  Sender: FDA-Public Use
  Company Number: CA-JNJFOC-20101000079

PATIENT
  Sex: Female
  Weight: 91 kg

DRUGS (3)
  1. REMICADE [Suspect]
     Indication: CROHN'S DISEASE
     Route: 042
  2. REMICADE [Suspect]
     Route: 042
  3. IMURAN [Concomitant]
     Route: 048

REACTIONS (3)
  - DIZZINESS [None]
  - DYSPNOEA [None]
  - PALPITATIONS [None]
